FAERS Safety Report 6709188-0 (Version None)
Quarter: 2010Q2

REPORT INFORMATION
  Report Type: 
  Country: None (occurrence: None)
  Receive Date: 20100504
  Receipt Date: 20100426
  Transmission Date: 20101027
  Serious: Yes (Hospitalization, Other)
  Sender: FDA-Public Use
  Company Number: US-SANOFI-AVENTIS-2010SA014261

PATIENT
  Age: 81 Year
  Sex: Male
  Weight: 81.63 kg

DRUGS (8)
  1. PLAVIX [Suspect]
     Route: 048
     Dates: start: 20100220
  2. PLAVIX [Suspect]
     Route: 048
     Dates: start: 20100220
  3. FINASTERIDE [Concomitant]
  4. METOPROLOL [Concomitant]
  5. SIMVASTATIN [Concomitant]
  6. TERAZOSIN HCL [Concomitant]
  7. OMEPRAZOLE [Concomitant]
  8. LISINOPRIL AND HYDROCHLOROTHIAZIDE [Concomitant]
     Dosage: 20/25MG DAILY

REACTIONS (4)
  - CEREBROVASCULAR ACCIDENT [None]
  - CHILLS [None]
  - PYREXIA [None]
  - TREMOR [None]
